FAERS Safety Report 12373697 (Version 1)
Quarter: 2016Q2

REPORT INFORMATION
  Report Type: Spontaneous
  Country: EG (occurrence: EG)
  Receive Date: 20160516
  Receipt Date: 20160516
  Transmission Date: 20160815
  Serious: Yes (Other)
  Sender: FDA-Public Use
  Company Number: PHHY2016EG064434

PATIENT
  Age: 42 Year
  Sex: Female

DRUGS (1)
  1. CEFTRIAXONE SODIUM SANDOZ [Suspect]
     Active Substance: CEFTRIAXONE SODIUM
     Indication: PRODUCT USED FOR UNKNOWN INDICATION
     Dosage: 1 G, UNK
     Route: 042

REACTIONS (5)
  - Hyperhidrosis [Recovered/Resolved]
  - Cellulitis [Recovered/Resolved]
  - Somnolence [Recovered/Resolved]
  - Injection site pain [Recovered/Resolved]
  - Hypersensitivity [Recovered/Resolved]

NARRATIVE: CASE EVENT DATE: 20160505
